FAERS Safety Report 5143736-X (Version None)
Quarter: 2006Q4

REPORT INFORMATION
  Report Type: 
  Country: None (occurrence: None)
  Receive Date: 20061106
  Receipt Date: 20061030
  Transmission Date: 20070319
  Serious: Yes (Death)
  Sender: FDA-Public Use
  Company Number: US-BAYER-200615143GDS

PATIENT
  Age: 50 Year

DRUGS (3)
  1. NIFEDIPINE [Suspect]
     Route: 048
  2. METOPROLOL TARTRATE [Suspect]
     Route: 048
  3. QUETIAPINE FUMARATE [Suspect]
     Route: 048

REACTIONS (2)
  - COMPLETED SUICIDE [None]
  - DRUG TOXICITY [None]
